FAERS Safety Report 9689316 (Version 2)
Quarter: 2013Q4

REPORT INFORMATION
  Report Type: Spontaneous
  Country: US (occurrence: US)
  Receive Date: 20131114
  Receipt Date: 20131121
  Transmission Date: 20140711
  Serious: Yes (Other)
  Sender: FDA-Public Use
  Company Number: US-PFIZER INC-2013324269

PATIENT
  Age: 41 Year
  Sex: Male
  Weight: 104 kg

DRUGS (5)
  1. LYRICA [Suspect]
     Indication: COMPLEX REGIONAL PAIN SYNDROME
     Dosage: UNK
     Dates: start: 2008, end: 2012
  2. LYRICA [Interacting]
     Indication: SOFT TISSUE INJURY
  3. ALCOHOL [Interacting]
     Dosage: UNK
  4. LOPRESSOR [Concomitant]
     Indication: HYPERTENSION
     Dosage: UNK, DAILY
  5. TOPROL [Concomitant]
     Dosage: UNK

REACTIONS (8)
  - Off label use [Unknown]
  - Intentional drug misuse [Unknown]
  - Road traffic accident [Unknown]
  - Intentional self-injury [Unknown]
  - Arthropathy [Unknown]
  - Aggression [Unknown]
  - Alcohol interaction [Unknown]
  - Amnesia [Recovered/Resolved]
